FAERS Safety Report 4482132-5 (Version None)
Quarter: 2004Q3

REPORT INFORMATION
  Report Type: 
  Country: None (occurrence: None)
  Receive Date: 20040921
  Receipt Date: 20040517
  Transmission Date: 20050211
  Serious: Yes (Hospitalization)
  Sender: FDA-Public Use
  Company Number: 163-20785-04050424(0)

PATIENT
  Age: 55 Year
  Sex: Male
  Weight: 78 kg

DRUGS (11)
  1. THALOMID [Suspect]
     Indication: MULTIPLE MYELOMA
     Dosage: SEE IMAGE
     Route: 048
     Dates: start: 20010905, end: 20020404
  2. THALOMID [Suspect]
     Indication: MULTIPLE MYELOMA
     Dosage: SEE IMAGE
     Route: 048
     Dates: start: 20030529
  3. PREDNISONE [Suspect]
     Indication: MULTIPLE MYELOMA
     Dosage: 50 MG, EVERY OTHER DAY, PER ORAL
     Route: 048
     Dates: start: 20030529
  4. PERCOCET [Concomitant]
  5. NEURONTIN [Concomitant]
  6. NEXIUM [Concomitant]
  7. POTASSIUM (POTASSIUM) [Concomitant]
  8. ASPIRIN [Concomitant]
  9. LASIX [Concomitant]
  10. OXYCONTIN [Concomitant]
  11. PAMIDRONATE DISODIUM [Concomitant]

REACTIONS (12)
  - ACIDOSIS [None]
  - BLOOD POTASSIUM DECREASED [None]
  - CHILLS [None]
  - COUGH [None]
  - DYSPNOEA [None]
  - HYPOXIA [None]
  - METABOLIC ACIDOSIS [None]
  - NEUROPATHY PERIPHERAL [None]
  - OEDEMA PERIPHERAL [None]
  - PNEUMONIA [None]
  - PYREXIA [None]
  - RESPIRATORY ACIDOSIS [None]
